FAERS Safety Report 17766139 (Version 4)
Quarter: 2020Q3

REPORT INFORMATION
  Report Type: Spontaneous
  Country: US (occurrence: US)
  Receive Date: 20200511
  Receipt Date: 20200810
  Transmission Date: 20201102
  Serious: No
  Sender: FDA-Public Use
  Company Number: US-GLAXOSMITHKLINE-US2020AMR078470

PATIENT
  Sex: Female

DRUGS (2)
  1. ZEJULA [Suspect]
     Active Substance: NIRAPARIB
     Dosage: 300 MG, QD
     Route: 048
     Dates: start: 20200424
  2. ZEJULA [Suspect]
     Active Substance: NIRAPARIB
     Indication: OVARIAN CANCER
     Dosage: 300 MG, QD
     Route: 065
     Dates: start: 20200427

REACTIONS (17)
  - Burning sensation [Unknown]
  - Dizziness [Unknown]
  - Carpal tunnel syndrome [Unknown]
  - Aphasia [Unknown]
  - Hangover [Unknown]
  - White blood cell count decreased [Unknown]
  - Dyspnoea exertional [Not Recovered/Not Resolved]
  - Nausea [Unknown]
  - Dyspnoea [Unknown]
  - Abdominal distension [Unknown]
  - Fluid retention [Unknown]
  - Red blood cell count decreased [Unknown]
  - Insomnia [Unknown]
  - Fatigue [Unknown]
  - Pain in extremity [Unknown]
  - Musculoskeletal stiffness [Unknown]
  - Myalgia [Unknown]
